FAERS Safety Report 5588543-9 (Version None)
Quarter: 2007Q4

REPORT INFORMATION
  Report Type: 
  Country: None (occurrence: None)
  Receive Date: 20071212
  Receipt Date: 20070820
  Transmission Date: 20080405
  Serious: No
  Sender: FDA-Public Use
  Company Number: 2007RL000373

PATIENT
  Age: 53 Year
  Sex: Male
  Weight: 100.2449 kg

DRUGS (6)
  1. LOVAZA [Suspect]
     Indication: ROUTINE HEALTH MAINTENANCE
     Dosage: 4 GM;QD;PO ; 2 GM;QD;PO ; 2GM;QD;PO ; 2 GM;QD;PO ; 2 GM;QD;PO
     Route: 048
     Dates: start: 20070801, end: 20070801
  2. LOVAZA [Suspect]
     Indication: ROUTINE HEALTH MAINTENANCE
     Dosage: 4 GM;QD;PO ; 2 GM;QD;PO ; 2GM;QD;PO ; 2 GM;QD;PO ; 2 GM;QD;PO
     Route: 048
     Dates: start: 20070601, end: 20070818
  3. LOVAZA [Suspect]
     Indication: ROUTINE HEALTH MAINTENANCE
     Dosage: 4 GM;QD;PO ; 2 GM;QD;PO ; 2GM;QD;PO ; 2 GM;QD;PO ; 2 GM;QD;PO
     Route: 048
     Dates: start: 20070901, end: 20070901
  4. LOVAZA [Suspect]
     Indication: ROUTINE HEALTH MAINTENANCE
     Dosage: 4 GM;QD;PO ; 2 GM;QD;PO ; 2GM;QD;PO ; 2 GM;QD;PO ; 2 GM;QD;PO
     Route: 048
     Dates: start: 20070901, end: 20070901
  5. LOVAZA [Suspect]
     Indication: ROUTINE HEALTH MAINTENANCE
     Dosage: 4 GM;QD;PO ; 2 GM;QD;PO ; 2GM;QD;PO ; 2 GM;QD;PO ; 2 GM;QD;PO
     Route: 048
     Dates: start: 20070901
  6. ELDEPRYL [Concomitant]

REACTIONS (3)
  - ARTHRALGIA [None]
  - OFF LABEL USE [None]
  - TREATMENT NONCOMPLIANCE [None]
